FAERS Safety Report 8237949-8 (Version None)
Quarter: 2012Q1

REPORT INFORMATION
  Report Type: 
  Country: None (occurrence: None)
  Receive Date: 20120327
  Receipt Date: 20120321
  Transmission Date: 20120608
  Serious: Yes (Other)
  Sender: FDA-Public Use
  Company Number: AU-JNJFOC-20120108605

PATIENT
  Sex: Female

DRUGS (5)
  1. PRISTIQ [Concomitant]
     Route: 065
  2. STELARA [Suspect]
     Route: 058
     Dates: start: 20120105
  3. PREDNISOLONE [Concomitant]
     Route: 065
  4. STELARA [Suspect]
     Indication: PSORIASIS
     Route: 058
     Dates: start: 20120201
  5. LABETALOL HCL [Concomitant]
     Route: 065

REACTIONS (2)
  - HEADACHE [None]
  - ARTHRALGIA [None]
